FAERS Safety Report 11790592 (Version 1)
Quarter: 2015Q4

REPORT INFORMATION
  Report Type: Spontaneous
  Country: US (occurrence: US)
  Receive Date: 20151201
  Receipt Date: 20151201
  Transmission Date: 20160305
  Serious: No
  Sender: FDA-Public Use
  Company Number: US-PFIZER INC-2015402343

PATIENT
  Sex: Female

DRUGS (2)
  1. TOLTERODINE TARTRATE. [Suspect]
     Active Substance: TOLTERODINE TARTRATE
  2. OXYBUTYNIN [Suspect]
     Active Substance: OXYBUTYNIN

REACTIONS (1)
  - Drug effect incomplete [Unknown]
